FAERS Safety Report 14346017 (Version 1)
Quarter: 2018Q1

REPORT INFORMATION
  Report Type: Spontaneous
  Country: NL (occurrence: NL)
  Receive Date: 20180103
  Receipt Date: 20180103
  Transmission Date: 20180509
  Serious: Yes (Life-Threatening, Hospitalization)
  Sender: FDA-Public Use
  Company Number: NL-MYLANLABS-2017M1083600

PATIENT
  Age: 56 Year
  Sex: Female
  Weight: 68 kg

DRUGS (1)
  1. CLOPIDOGREL [Suspect]
     Active Substance: CLOPIDOGREL BISULFATE
     Indication: PERCUTANEOUS CORONARY INTERVENTION
     Dosage: 75 MG, QD
     Dates: start: 20171113, end: 20171123

REACTIONS (3)
  - Eosinophilia [Recovering/Resolving]
  - Shock [Recovered/Resolved with Sequelae]
  - Urticaria [Recovered/Resolved]

NARRATIVE: CASE EVENT DATE: 20171115
